FAERS Safety Report 17084707 (Version 1)
Quarter: 2019Q4

REPORT INFORMATION
  Report Type: Spontaneous
  Country: US (occurrence: US)
  Receive Date: 20191127
  Receipt Date: 20191127
  Transmission Date: 20200122
  Serious: No
  Sender: FDA-Public Use
  Company Number: US-TEVA-2019-US-1139655

PATIENT
  Age: 56 Year
  Sex: Female

DRUGS (2)
  1. ALBUTEROL SULFATE HFA [Suspect]
     Active Substance: ALBUTEROL SULFATE
     Indication: WHEEZING
  2. ALBUTEROL SULFATE HFA [Suspect]
     Active Substance: ALBUTEROL SULFATE
     Indication: ASTHMA
     Dosage: INHALER, TWICE DAILY
     Route: 065
     Dates: start: 20191113

REACTIONS (3)
  - Product prescribing error [Unknown]
  - Inappropriate schedule of product administration [Unknown]
  - Palpitations [Unknown]

NARRATIVE: CASE EVENT DATE: 20191113
